FAERS Safety Report 7004095-0 (Version None)
Quarter: 2010Q3

REPORT INFORMATION
  Report Type: 
  Country: None (occurrence: None)
  Receive Date: 20100920
  Receipt Date: 20100202
  Transmission Date: 20110219
  Serious: No
  Sender: FDA-Public Use
  Company Number: US-WYE-H13417610

PATIENT
  Sex: Female
  Weight: 51.76 kg

DRUGS (4)
  1. PRISTIQ [Suspect]
     Indication: DEPRESSION
     Dates: start: 20100101
  2. LORAZEPAM [Concomitant]
  3. LIOTHYRONINE SODIUM [Concomitant]
  4. SYNTHROID [Concomitant]

REACTIONS (2)
  - DRY EYE [None]
  - EYE SWELLING [None]
